APPROVED DRUG PRODUCT: DIPYRIDAMOLE
Active Ingredient: DIPYRIDAMOLE
Strength: 50MG
Dosage Form/Route: TABLET;ORAL
Application: A040733 | Product #002 | TE Code: AB
Applicant: RISING PHARMA HOLDING INC
Approved: Feb 13, 2007 | RLD: No | RS: No | Type: RX